FAERS Safety Report 13497568 (Version 1)
Quarter: 2017Q2

REPORT INFORMATION
  Report Type: Spontaneous
  Country: US (occurrence: US)
  Receive Date: 20170428
  Receipt Date: 20170428
  Transmission Date: 20170830
  Serious: No
  Sender: FDA-Public Use
  Company Number: US-BAYER-2017-080621

PATIENT
  Age: 38 Year
  Sex: Female
  Weight: 74.38 kg

DRUGS (5)
  1. ADVAIR HFA [Concomitant]
     Active Substance: FLUTICASONE PROPIONATE\SALMETEROL XINAFOATE
  2. ULTRAVIST [Suspect]
     Active Substance: IOPROMIDE
     Indication: INVESTIGATION
  3. ALBUTEROL. [Concomitant]
     Active Substance: ALBUTEROL
  4. ULTRAVIST [Suspect]
     Active Substance: IOPROMIDE
     Indication: COMPUTERISED TOMOGRAM ABDOMEN
  5. ULTRAVIST [Suspect]
     Active Substance: IOPROMIDE
     Indication: COMPUTERISED TOMOGRAM PELVIS
     Dosage: 100 ML, ONCE, WITH INJECTOR, INJECTION RATE 2.5/S
     Route: 042
     Dates: start: 20170424, end: 20170424

REACTIONS (2)
  - Dyspnoea [Recovered/Resolved]
  - Sneezing [Recovered/Resolved]

NARRATIVE: CASE EVENT DATE: 20170424
